FAERS Safety Report 8620650-6 (Version None)
Quarter: 2012Q3

REPORT INFORMATION
  Report Type: 
  Country: None (occurrence: None)
  Receive Date: 20120824
  Receipt Date: 20120810
  Transmission Date: 20120928
  Serious: Yes (Hospitalization)
  Sender: FDA-Public Use
  Company Number: JP-VERTEX PHARMACEUTICAL INC.-AE-2012-004429

PATIENT
  Age: 66 Year
  Sex: Female

DRUGS (13)
  1. VX-950 [Suspect]
     Dosage: 1500 MG, UNK
     Route: 048
     Dates: start: 20120427
  2. RIBAVIRIN [Concomitant]
     Dosage: 200 MG, QD
     Route: 048
     Dates: start: 20120306
  3. PEGINTERFERON ALFA-2B [Concomitant]
     Dosage: 1.5 A?G/KG, UNK
     Route: 058
     Dates: start: 20120207, end: 20120710
  4. VX-950 [Suspect]
     Dosage: 1500 MG, UNK
     Route: 048
     Dates: start: 20120221, end: 20120305
  5. RIBAVIRIN [Concomitant]
     Dosage: 600 MG, QD
     Route: 048
     Dates: start: 20120529, end: 20120718
  6. RIBAVIRIN [Concomitant]
     Dosage: UNK
  7. RIBAVIRIN [Concomitant]
     Dosage: 600 MG, QD
     Route: 048
     Dates: start: 20120207, end: 20120305
  8. CEFMETAZOLE SODIUM [Concomitant]
     Dosage: 2 G, UNK
     Route: 042
     Dates: start: 20120330, end: 20120405
  9. RIBAVIRIN [Concomitant]
     Dosage: UNK
  10. VX-950 [Suspect]
     Dosage: 1000 MG, UNK
     Route: 048
     Dates: start: 20120306
  11. VX-950 [Suspect]
     Indication: HEPATITIS C
     Dosage: 2250 MG, UNK
     Route: 048
     Dates: start: 20120207, end: 20120220
  12. RIBAVIRIN [Concomitant]
     Dosage: 400 MG, QD
     Route: 048
     Dates: start: 20120508
  13. MEROPEN                            /01250501/ [Suspect]
     Dosage: 1 G, UNK
     Route: 042
     Dates: start: 20120718, end: 20120718

REACTIONS (3)
  - CHOLECYSTITIS ACUTE [None]
  - ANAEMIA [None]
  - APPENDICITIS [None]
